FAERS Safety Report 5926020-3 (Version None)
Quarter: 2008Q3

REPORT INFORMATION
  Report Type: 
  Country: None (occurrence: None)
  Receive Date: 20080924
  Receipt Date: 20080627
  Transmission Date: 20090109
  Serious: Yes (Other)
  Sender: FDA-Public Use
  Company Number: US-WYE-H04771808

PATIENT
  Age: 65 Year
  Sex: Male

DRUGS (15)
  1. TORISEL [Suspect]
     Indication: RENAL CELL CARCINOMA
     Dosage: 25 MG 1X PER 1 WK, INTRAVENOUS
     Route: 042
     Dates: start: 20080609, end: 20080609
  2. DIGOXIN [Concomitant]
  3. PENTASA [Concomitant]
  4. CHOLESTYRAMINE RESIN (COLESTYRAMINE) [Concomitant]
  5. TRICOR [Concomitant]
  6. COMPAZINE [Concomitant]
  7. METOPROLOL TARTRATE [Concomitant]
  8. ACYCLOVIR [Concomitant]
  9. ASA (ACETYSALICYLIC ACID) [Concomitant]
  10. THORAZINE [Concomitant]
  11. COUMADIN [Concomitant]
  12. SPORANOX [Concomitant]
  13. CIPRO [Concomitant]
  14. COREG [Concomitant]
  15. NEUPOGEN [Concomitant]

REACTIONS (2)
  - ANAEMIA [None]
  - THROMBOCYTOPENIA [None]
